FAERS Safety Report 4466835-4 (Version None)
Quarter: 2004Q4

REPORT INFORMATION
  Report Type: 
  Country: None (occurrence: None)
  Receive Date: 20041006
  Receipt Date: 20040715
  Transmission Date: 20050328
  Serious: Yes (Hospitalization)
  Sender: FDA-Public Use
  Company Number: US-ROCHE-374701

PATIENT
  Age: 50 Year
  Sex: Female

DRUGS (8)
  1. PEGASYS [Suspect]
     Indication: HEPATITIS C
     Route: 065
     Dates: start: 20040630
  2. PEGASYS [Suspect]
     Route: 065
     Dates: start: 20040913, end: 20040919
  3. COPEGUS [Suspect]
     Indication: HEPATITIS C
     Route: 048
     Dates: start: 20040630, end: 20040919
  4. XANAX [Suspect]
     Indication: DRUG USE FOR UNKNOWN INDICATION
     Route: 065
     Dates: end: 20040919
  5. HYDROCODONE [Concomitant]
  6. IBUPROFEN [Concomitant]
  7. EFFEXOR [Concomitant]
  8. BLOOD PRESSURE MEDICATIONS NOS [Concomitant]

REACTIONS (16)
  - ABDOMINAL DISTENSION [None]
  - BLOOD POTASSIUM DECREASED [None]
  - CONVULSION [None]
  - DEPRESSION [None]
  - GASTRIC DISORDER [None]
  - GASTROINTESTINAL OEDEMA [None]
  - ILL-DEFINED DISORDER [None]
  - LOCALISED OEDEMA [None]
  - MARKEDLY REDUCED DIETARY INTAKE [None]
  - MUSCLE TIGHTNESS [None]
  - OVERDOSE [None]
  - SALIVA ALTERED [None]
  - STRESS SYMPTOMS [None]
  - SUICIDE ATTEMPT [None]
  - TREMOR [None]
  - URINARY TRACT INFECTION [None]
